FAERS Safety Report 12264231 (Version 1)
Quarter: 2016Q2

REPORT INFORMATION
  Report Type: Spontaneous
  Country: US (occurrence: US)
  Receive Date: 20160413
  Receipt Date: 20160413
  Transmission Date: 20160815
  Serious: No
  Sender: FDA-Public Use
  Company Number: US-JNJFOC-20160302765

PATIENT
  Age: 78 Year
  Sex: Female
  Weight: 56.25 kg

DRUGS (4)
  1. PROMETHAZINUM [Concomitant]
     Indication: HOT FLUSH
     Route: 065
  2. ESTROGEN [Concomitant]
     Active Substance: ESTRONE\SUS SCROFA OVARY
     Indication: HOT FLUSH
     Route: 065
  3. WOMENS ROGAINE UNSCENTED [Suspect]
     Active Substance: MINOXIDIL
     Indication: ALOPECIA
     Dosage: SQUIRTED IT ONTO HER HEAD
     Route: 061
     Dates: start: 20160124, end: 20160207
  4. WOMENS ROGAINE UNSCENTED [Suspect]
     Active Substance: MINOXIDIL
     Route: 061

REACTIONS (4)
  - Off label use [Recovered/Resolved]
  - Dizziness [Recovered/Resolved]
  - Product use issue [Recovered/Resolved]
  - Chest discomfort [Recovered/Resolved]
